FAERS Safety Report 20057969 (Version 4)
Quarter: 2022Q1

REPORT INFORMATION
  Report Type: Report from Study
  Country: IL (occurrence: IL)
  Receive Date: 20211111
  Receipt Date: 20220302
  Transmission Date: 20220424
  Serious: Yes (Other)
  Sender: FDA-Public Use
  Company Number: IL-ABBVIE-21K-082-4114348-00

PATIENT
  Sex: Female
  Weight: 57 kg

DRUGS (2)
  1. HUMIRA [Suspect]
     Active Substance: ADALIMUMAB
     Indication: Colitis ulcerative
     Route: 058
     Dates: start: 20210820
  2. RAFASSAL [Concomitant]
     Indication: Product used for unknown indication

REACTIONS (13)
  - Haematochezia [Not Recovered/Not Resolved]
  - Fatigue [Recovered/Resolved]
  - Fatigue [Not Recovered/Not Resolved]
  - Asthenia [Recovered/Resolved]
  - Weight loss poor [Unknown]
  - Affective disorder [Not Recovered/Not Resolved]
  - Heart rate increased [Recovered/Resolved]
  - Pain [Unknown]
  - Confusional state [Unknown]
  - Asthma [Unknown]
  - Abdominal pain [Not Recovered/Not Resolved]
  - Heart rate increased [Recovering/Resolving]
  - Drug level decreased [Recovering/Resolving]

NARRATIVE: CASE EVENT DATE: 20210101
